FAERS Safety Report 14568091 (Version 1)
Quarter: 2018Q1

REPORT INFORMATION
  Report Type: Other
  Country: IN (occurrence: IN)
  Receive Date: 20180223
  Receipt Date: 20180223
  Transmission Date: 20180509
  Serious: Yes (Life-Threatening, Hospitalization)
  Sender: FDA-Public Use
  Company Number: IN-NOSTRUM LABORATORIES, INC.-2042492

PATIENT
  Age: 30 Year
  Sex: Female

DRUGS (1)
  1. DAPSONE. [Suspect]
     Active Substance: DAPSONE
     Indication: LEPROMATOUS LEPROSY
     Route: 048

REACTIONS (2)
  - Drug hypersensitivity [Recovered/Resolved]
  - Drug-induced liver injury [Recovered/Resolved]
